FAERS Safety Report 5382119-4 (Version None)
Quarter: 2007Q3

REPORT INFORMATION
  Report Type: 
  Country: None (occurrence: None)
  Receive Date: 20070709
  Receipt Date: 20070629
  Transmission Date: 20080115
  Serious: Yes (Other)
  Sender: FDA-Public Use
  Company Number: BR-ABBOTT-07P-020-0373245-00

PATIENT
  Age: 64 Year
  Sex: Female
  Weight: 115 kg

DRUGS (3)
  1. SYNTHROID [Suspect]
     Indication: GOITRE
     Route: 048
     Dates: start: 20040101
  2. ATENOLOL [Concomitant]
     Indication: HYPERTENSION
     Route: 048
     Dates: start: 19970101
  3. DICLOFENAC [Concomitant]
     Indication: NECK PAIN
     Dosage: SPORADICALLY
     Route: 048

REACTIONS (2)
  - ALOPECIA [None]
  - UTERINE CANCER [None]
